FAERS Safety Report 18152170 (Version 1)
Quarter: 2020Q3

REPORT INFORMATION
  Report Type: Spontaneous
  Country: CN (occurrence: CN)
  Receive Date: 20200814
  Receipt Date: 20200814
  Transmission Date: 20201103
  Serious: Yes (Other)
  Sender: FDA-Public Use
  Company Number: CN-GLAXOSMITHKLINE-CN2020APC157382

PATIENT
  Age: 44 Year
  Sex: Female
  Weight: 57 kg

DRUGS (11)
  1. PIPERAZINE FERULATE TABLETS [Concomitant]
     Indication: DEPRESSION
     Dosage: 150 MG, BID
     Route: 048
     Dates: start: 20200731
  2. HYDROXYCHLOROQUINE SULFATE TABLET [Concomitant]
     Active Substance: HYDROXYCHLOROQUINE SULFATE
     Indication: SYSTEMIC LUPUS ERYTHEMATOSUS
     Dosage: 200 MG, BID
     Route: 048
     Dates: start: 20200715
  3. PREDNISONE ACETATE TABLET [Concomitant]
     Indication: SYSTEMIC LUPUS ERYTHEMATOSUS
     Dosage: 35 MG, QD
     Route: 048
     Dates: start: 20200715
  4. ALFACALCIDOL TABLETS [Concomitant]
     Indication: OSTEOPOROSIS
     Dosage: 0.5 UG, QD
     Route: 048
     Dates: start: 20200731
  5. BENLYSTA [Suspect]
     Active Substance: BELIMUMAB
     Indication: SYSTEMIC LUPUS ERYTHEMATOSUS
     Dosage: 600 MG
     Route: 042
     Dates: start: 20200715, end: 20200715
  6. HYDROTALCITE CHEWABLE TABLET [Concomitant]
     Indication: GASTRIC DISORDER
     Dosage: 1 G, BID
     Route: 048
     Dates: start: 20200731
  7. PREDNISONE ACETATE TABLET [Concomitant]
     Indication: SYSTEMIC LUPUS ERYTHEMATOSUS
  8. BENLYSTA [Suspect]
     Active Substance: BELIMUMAB
     Dosage: 600 MG
     Route: 042
     Dates: start: 20200731, end: 20200731
  9. CICLOSPORIN SOFT CAPSULES [Concomitant]
     Indication: SYSTEMIC LUPUS ERYTHEMATOSUS
     Dosage: 500 MG, BID
     Route: 048
     Dates: start: 20200715
  10. WARFARIN SODIUM TABLET [Concomitant]
     Active Substance: WARFARIN SODIUM
     Indication: CEREBROVASCULAR ACCIDENT
     Dosage: 3.125 MG, QD
     Route: 048
     Dates: start: 20200731
  11. ASPIRIN ENTERIC COATED TABLET [Concomitant]
     Indication: CEREBROVASCULAR ACCIDENT
     Dosage: 100 MG, QD
     Route: 048
     Dates: start: 20200731

REACTIONS (2)
  - Eye haemorrhage [Not Recovered/Not Resolved]
  - Condition aggravated [Not Recovered/Not Resolved]

NARRATIVE: CASE EVENT DATE: 20200729
